FAERS Safety Report 15749137 (Version 2)
Quarter: 2018Q4

REPORT INFORMATION
  Report Type: Spontaneous
  Country: FR (occurrence: FR)
  Receive Date: 20181221
  Receipt Date: 20181221
  Transmission Date: 20190205
  Serious: Yes (Death, Other)
  Sender: FDA-Public Use
  Company Number: PHHY2018FR188924

PATIENT
  Age: 71 Year
  Sex: Male

DRUGS (2)
  1. CICLOSPORIN [Suspect]
     Active Substance: CYCLOSPORINE
     Indication: IMMUNOSUPPRESSANT DRUG THERAPY
  2. CICLOSPORIN [Suspect]
     Active Substance: CYCLOSPORINE
     Indication: RENAL TRANSPLANT
     Dosage: UNK
     Route: 065

REACTIONS (10)
  - Onychomycosis [Fatal]
  - Tinea pedis [Fatal]
  - Prostatitis [Unknown]
  - Pulmonary tuberculosis [Unknown]
  - Necrosis [Fatal]
  - Blister [Fatal]
  - Kidney transplant rejection [Unknown]
  - BK virus infection [Unknown]
  - Erythema [Fatal]
  - Skin lesion [Fatal]
